FAERS Safety Report 4785437-3 (Version None)
Quarter: 2005Q3

REPORT INFORMATION
  Report Type: 
  Country: None (occurrence: None)
  Receive Date: 20050929
  Receipt Date: 20050919
  Transmission Date: 20060218
  Serious: Yes (Hospitalization)
  Sender: FDA-Public Use
  Company Number: 2005131428

PATIENT
  Sex: Male

DRUGS (1)
  1. AZULFIDINE [Suspect]
     Indication: COLITIS ULCERATIVE
     Dosage: 3 GRAM (500 MG, 3 IN 1 D)

REACTIONS (2)
  - ABASIA [None]
  - MYELITIS TRANSVERSE [None]
